FAERS Safety Report 15589932 (Version 1)
Quarter: 2018Q4

REPORT INFORMATION
  Report Type: Spontaneous
  Country: US (occurrence: US)
  Receive Date: 20181106
  Receipt Date: 20181106
  Transmission Date: 20190205
  Serious: No
  Sender: FDA-Public Use
  Company Number: US-009507513-1811USA001665

PATIENT
  Age: 39 Year
  Sex: Female
  Weight: 102.95 kg

DRUGS (1)
  1. NEXPLANON [Suspect]
     Active Substance: ETONOGESTREL
     Dosage: 1 DOSAGE FORM
     Route: 059
     Dates: start: 20141029

REACTIONS (6)
  - Incorrect product administration duration [Unknown]
  - Device breakage [Unknown]
  - Expired product administered [Unknown]
  - Product quality issue [Unknown]
  - Implant site pain [Unknown]
  - Complication of device removal [Unknown]

NARRATIVE: CASE EVENT DATE: 20181101
